FAERS Safety Report 5750745-6 (Version None)
Quarter: 2008Q2

REPORT INFORMATION
  Report Type: 
  Country: None (occurrence: None)
  Receive Date: 20080528
  Receipt Date: 20080522
  Transmission Date: 20081010
  Serious: Yes (Other)
  Sender: FDA-Public Use
  Company Number: US-RB-000734-08

PATIENT
  Age: 37 Year
  Sex: Female
  Weight: 51.75 kg

DRUGS (4)
  1. SUBUTEX [Suspect]
     Dosage: TOOK 2MG INITIALLY, 4 HRS LATER 4MG, 4 HRS LATER 2 MG FOR TOTAL OF 8 MG FIRST DAY
     Route: 060
     Dates: start: 20080408, end: 20080408
  2. SUBUTEX [Suspect]
     Dosage: 8MG IN THE AM, 4MG AT NOON, 4 MG IN THE EVENING FOR A TOTAL OF 16MG
     Route: 060
     Dates: start: 20080409, end: 20080409
  3. SUBUTEX [Suspect]
     Route: 060
     Dates: start: 20080410
  4. VALIUM [Suspect]
     Indication: DRUG USE FOR UNKNOWN INDICATION
     Dosage: PATIENT WAS TAKING 30 MG PER DAY OR HIGHER, PATIENT HAD BEEN ABUSING VALIUM.
     Route: 048
     Dates: end: 20080407

REACTIONS (5)
  - CONVULSION [None]
  - DEMENTIA [None]
  - HEADACHE [None]
  - INSOMNIA [None]
  - NAUSEA [None]
